FAERS Safety Report 24683996 (Version 1)
Quarter: 2024Q4

REPORT INFORMATION
  Report Type: Spontaneous
  Country: DE (occurrence: DE)
  Receive Date: 20241202
  Receipt Date: 20241202
  Transmission Date: 20250115
  Serious: Yes (Other)
  Sender: SANDOZ
  Company Number: DE-SANDOZ-SDZ2024DE099031

PATIENT
  Age: 19 Year

DRUGS (7)
  1. AMBRISENTAN [Suspect]
     Active Substance: AMBRISENTAN
     Indication: Heritable pulmonary arterial hypertension
     Dosage: 10 MILLIGRAM
     Route: 065
  2. EPLERENONE [Suspect]
     Active Substance: EPLERENONE
     Indication: Heritable pulmonary arterial hypertension
     Dosage: 50 MILLIGRAM DAILY
     Route: 065
  3. RIOCIGUAT [Suspect]
     Active Substance: RIOCIGUAT
     Indication: Heritable pulmonary arterial hypertension
     Dosage: 2,5 MILLIGRAM, 3 TIMES DAILY
     Route: 065
  4. SOTATERCEPT [Suspect]
     Active Substance: SOTATERCEPT
     Dosage: 0.3 MILLIGRAM/KILOGRAM, FIRST DOSE
     Route: 065
  5. SOTATERCEPT [Suspect]
     Active Substance: SOTATERCEPT
     Indication: Heritable pulmonary arterial hypertension
     Dosage: 0.7 MILLIGRAM/KILOGRAM, LABEL-COMPLIANT
     Route: 065
  6. TORSEMIDE [Suspect]
     Active Substance: TORSEMIDE
     Indication: Heritable pulmonary arterial hypertension
     Dosage: 100 MILLIGRAM DAILY
     Route: 065
  7. TREPROSTINIL [Suspect]
     Active Substance: TREPROSTINIL
     Indication: Heritable pulmonary arterial hypertension
     Dosage: 65 NG/KG/MIN
     Route: 042

REACTIONS (1)
  - Pericardial effusion [Recovering/Resolving]

NARRATIVE: CASE EVENT DATE: 20240301
